FAERS Safety Report 4574890-6 (Version None)
Quarter: 2005Q1

REPORT INFORMATION
  Report Type: 
  Country: None (occurrence: None)
  Receive Date: 20050208
  Receipt Date: 20040728
  Transmission Date: 20050727
  Serious: No
  Sender: FDA-Public Use
  Company Number: US-GLAXOSMITHKLINE-A0520085A

PATIENT
  Age: 60 Year
  Sex: Female

DRUGS (14)
  1. PAXIL CR [Suspect]
     Dosage: 12.5MG PER DAY
     Route: 048
  2. ATIVAN [Concomitant]
  3. TYLENOL W/ CODEINE NO. 3 [Concomitant]
  4. VITAMIN E [Concomitant]
  5. UNKNOWN MEDICATION [Concomitant]
     Route: 065
  6. FOLIC ACID [Concomitant]
  7. GARLIC [Concomitant]
  8. KELP [Concomitant]
  9. LECITHIN [Concomitant]
  10. VITAMIN B COMPLEX CAP [Concomitant]
  11. POTASSIUM CHLORIDE [Concomitant]
  12. SOY [Concomitant]
  13. VITAMIN C [Concomitant]
  14. CITRUCEL [Concomitant]
     Route: 065

REACTIONS (7)
  - ABDOMINAL DISTENSION [None]
  - AGITATION [None]
  - ANGER [None]
  - DRUG WITHDRAWAL SYNDROME [None]
  - FEELING ABNORMAL [None]
  - STOMACH DISCOMFORT [None]
  - WEIGHT INCREASED [None]
